FAERS Safety Report 14813175 (Version 1)
Quarter: 2018Q2

REPORT INFORMATION
  Report Type: Spontaneous
  Country: US (occurrence: US)
  Receive Date: 20180426
  Receipt Date: 20180426
  Transmission Date: 20180711
  Serious: Yes (Other)
  Sender: FDA-Public Use
  Company Number: US-JNJFOC-20180417198

PATIENT
  Sex: Female

DRUGS (1)
  1. NTG FACIAL MOISTURIZER UNSPECIFIED (AVOBENZONE\HOMOSALATE\OCTISALATE\OCTOCRYLENE\OXYBENZONE) [Suspect]
     Active Substance: AVOBENZONE\HOMOSALATE\OCTISALATE\OCTOCRYLENE\OXYBENZONE
     Indication: PRODUCT USED FOR UNKNOWN INDICATION
     Route: 061

REACTIONS (7)
  - Application site pruritus [Recovering/Resolving]
  - Application site swelling [Recovering/Resolving]
  - Application site exfoliation [None]
  - Application site dryness [Recovering/Resolving]
  - Application site rash [Recovering/Resolving]
  - Eye swelling [None]
  - Application site pain [Recovering/Resolving]
